FAERS Safety Report 6111534-6 (Version None)
Quarter: 2009Q1

REPORT INFORMATION
  Report Type: 
  Country: None (occurrence: None)
  Receive Date: 20090311
  Receipt Date: 20090305
  Transmission Date: 20090719
  Serious: Yes (Other)
  Sender: FDA-Public Use
  Company Number: GB-ABBOTT-09P-167-0560788-00

PATIENT
  Age: 70 Year
  Sex: Female
  Weight: 65 kg

DRUGS (10)
  1. HUMIRA [Suspect]
     Indication: RHEUMATOID ARTHRITIS
     Dates: start: 20081201, end: 20081201
  2. PREDNISOLONE [Concomitant]
     Indication: RHEUMATOID ARTHRITIS
  3. ETODOLAC [Concomitant]
     Indication: RHEUMATOID ARTHRITIS
     Dates: start: 20050101
  4. BENDROFLUMETHIAZIDE [Concomitant]
     Indication: HYPERTENSION
     Dates: start: 20060101
  5. ALENDRONATE SODIUM [Concomitant]
     Indication: OSTEOPOROSIS
     Dates: start: 20050101
  6. OMEPRAZOLE [Concomitant]
     Indication: HIATUS HERNIA
     Dates: start: 20080501
  7. CO-DYDRAMOL [Concomitant]
     Indication: PAIN
     Dates: start: 20050101
  8. CALICHEW D3 [Concomitant]
     Indication: OSTEOPOROSIS
     Dates: start: 20080101
  9. AMITRIPTYLINE [Concomitant]
     Indication: PAIN
     Dates: start: 20080101
  10. LEFLUNAMIDE [Concomitant]
     Indication: DRUG USE FOR UNKNOWN INDICATION
     Dates: start: 20060101, end: 20070601

REACTIONS (3)
  - MALAISE [None]
  - PYREXIA [None]
  - RASH [None]
